FAERS Safety Report 5091431-8 (Version None)
Quarter: 2006Q3

REPORT INFORMATION
  Report Type: 
  Country: None (occurrence: None)
  Receive Date: 20060727
  Receipt Date: 20060410
  Transmission Date: 20061208
  Serious: Yes (Other)
  Sender: FDA-Public Use
  Company Number: 2006051427

PATIENT
  Sex: Female

DRUGS (1)
  1. LYRICA [Suspect]
     Indication: ILL-DEFINED DISORDER
     Dosage: 150 MG (75 MG,2 IN 1 D)
     Dates: start: 20060406, end: 20060407

REACTIONS (4)
  - DISTURBANCE IN ATTENTION [None]
  - DRY MOUTH [None]
  - FEELING DRUNK [None]
  - INSOMNIA [None]
